FAERS Safety Report 8818148 (Version 1)
Quarter: 2012Q4

REPORT INFORMATION
  Report Type: Report from Study
  Country: US (occurrence: US)
  Receive Date: 20121001
  Receipt Date: 20121001
  Transmission Date: 20130627
  Serious: Yes (Other)
  Sender: FDA-Public Use
  Company Number: US-ABBOTT-12P-163-0985873-00

PATIENT
  Age: 26 Year
  Sex: Female

DRUGS (5)
  1. HUMIRA [Suspect]
     Indication: CROHN^S DISEASE
  2. HUMIRA [Suspect]
  3. HUMIRA [Suspect]
  4. HUMIRA [Suspect]
  5. HUMIRA [Suspect]

REACTIONS (4)
  - Hernia [Not Recovered/Not Resolved]
  - Female sterilisation [Unknown]
  - Drug effect decreased [Unknown]
  - Crohn^s disease [Unknown]
